FAERS Safety Report 10427270 (Version 2)
Quarter: 2014Q4

REPORT INFORMATION
  Report Type: Spontaneous
  Country: US (occurrence: None)
  Receive Date: 20140725
  Receipt Date: 20141023
  Transmission Date: 20150528
  Serious: No
  Sender: FDA-Public Use
  Company Number: AP356-00865-SPO-US

PATIENT
  Age: 40 Year
  Sex: Female
  Weight: 65 kg

DRUGS (3)
  1. BELVIQ [Suspect]
     Active Substance: LORCASERIN HYDROCHLORIDE
     Indication: WEIGHT CONTROL
     Route: 048
     Dates: start: 20140530, end: 20140531
  2. METHIMAZOLE (THIAMAZOLE) [Concomitant]
  3. BELVIQ [Suspect]
     Active Substance: LORCASERIN HYDROCHLORIDE
     Indication: METABOLIC DISORDER
     Route: 048
     Dates: start: 20140530, end: 20140531

REACTIONS (3)
  - Dizziness postural [None]
  - Weight increased [None]
  - Fatigue [None]

NARRATIVE: CASE EVENT DATE: 20140530
